FAERS Safety Report 7382342-3 (Version None)
Quarter: 2011Q1

REPORT INFORMATION
  Report Type: 
  Country: None (occurrence: None)
  Receive Date: 20110329
  Receipt Date: 20110222
  Transmission Date: 20110831
  Serious: Yes (Death, Other)
  Sender: FDA-Public Use
  Company Number: US-BAYER-200941014NA

PATIENT
  Age: 65 Year
  Sex: Male
  Weight: 94.7 kg

DRUGS (29)
  1. NEXIUM [Concomitant]
     Dosage: 40 MG, UNK
  2. LEVOTHYROXINE SODIUM [Concomitant]
     Dosage: 0.2 UNK, UNK
  3. FENTANYL [Concomitant]
     Dosage: UNK
     Route: 042
     Dates: start: 20060211, end: 20060211
  4. LIDOCAINE [Concomitant]
     Dosage: 100 MG, UNK
     Route: 042
     Dates: start: 20060211, end: 20060211
  5. MAGNESIUM SULFATE [Concomitant]
     Dosage: 2 G, UNK
     Route: 042
     Dates: start: 20060211, end: 20060211
  6. CALCIUM CHLORIDE [Concomitant]
     Dosage: 1 G, UNK
     Route: 042
     Dates: start: 20060211, end: 20060211
  7. DOBUTREX [Concomitant]
  8. ZOCOR [Concomitant]
     Dosage: 40 MG, UNK
  9. DOBUTAMINE [Concomitant]
     Dosage: UNK
     Route: 042
     Dates: start: 20060211, end: 20060211
  10. LASIX [Concomitant]
     Dosage: 20 MG, UNK
     Route: 042
     Dates: start: 20060211, end: 20060211
  11. PLAVIX [Concomitant]
     Dosage: 75 MG, UNK
  12. SPIRONOLACTONE [Concomitant]
  13. UNIRETIC [Concomitant]
     Dosage: 15 MG, UNK
  14. SODIUM BICARBONATE [Concomitant]
     Dosage: 50 MEQ, UNK
     Route: 042
  15. TRASYLOL [Suspect]
     Indication: CORONARY ARTERY BYPASS
     Dosage: 200 ML, UNK
     Route: 042
     Dates: start: 20060211, end: 20060211
  16. ALLOPURINOL [Concomitant]
     Dosage: 100 MG, UNK
  17. HEPARIN SODIUM [Concomitant]
     Dosage: UNK
     Route: 042
     Dates: start: 20060211, end: 20060211
  18. CEFUROXIME [Concomitant]
     Dosage: 3 MG, UNK
     Route: 042
     Dates: start: 20060211, end: 20060211
  19. CORLOPAM [Concomitant]
  20. TRASYLOL [Suspect]
     Indication: INTRA-AORTIC BALLOON PLACEMENT
  21. INTEGRILIN [Concomitant]
  22. HEPARIN SODIUM [Concomitant]
     Dosage: 10000 U
     Route: 042
     Dates: start: 20060211, end: 20060211
  23. HEPARIN SODIUM [Concomitant]
     Dosage: 5000 U, UNK
     Dates: start: 20060211, end: 20060211
  24. MANNITOL [Concomitant]
     Dosage: 25 G, UNK
     Route: 042
     Dates: start: 20060211, end: 20060211
  25. INSULIN [Concomitant]
  26. CELEBREX [Concomitant]
     Dosage: 200 MG, UNK
  27. VERSED [Concomitant]
     Dosage: 5 MG, UNK
     Route: 042
     Dates: start: 20060211, end: 20060211
  28. EPINEPHRINE [Concomitant]
     Dosage: UNK
     Route: 042
     Dates: start: 20060211, end: 20060211
  29. PHENYLEPHRINE HCL [Concomitant]
     Dosage: 2.5 MG, UNK
     Route: 042
     Dates: start: 20060211, end: 20060211

REACTIONS (9)
  - DEATH [None]
  - INJURY [None]
  - UNEVALUABLE EVENT [None]
  - PAIN [None]
  - DEPRESSION [None]
  - RENAL FAILURE [None]
  - ANHEDONIA [None]
  - FEAR [None]
  - ANXIETY [None]
